FAERS Safety Report 6688889-7 (Version None)
Quarter: 2010Q2

REPORT INFORMATION
  Report Type: 
  Country: None (occurrence: None)
  Receive Date: 20100420
  Receipt Date: 20100409
  Transmission Date: 20101027
  Serious: Yes (Hospitalization)
  Sender: FDA-Public Use
  Company Number: US-JNJFOC-20100403056

PATIENT
  Sex: Female
  Weight: 72.58 kg

DRUGS (6)
  1. FENTANYL CITRATE [Suspect]
     Indication: PAIN
     Route: 062
  2. FENTANYL CITRATE [Suspect]
     Route: 062
  3. DURAGESIC-100 [Suspect]
     Indication: PAIN
     Route: 062
  4. TOPAMAX [Suspect]
     Indication: ATTENTION DEFICIT/HYPERACTIVITY DISORDER
     Route: 048
  5. DEPAKOTE [Concomitant]
     Indication: MIGRAINE
     Route: 048
  6. PERCOCET [Concomitant]
     Indication: BREAKTHROUGH PAIN
     Route: 048

REACTIONS (8)
  - APPLICATION SITE REACTION [None]
  - ARTHRALGIA [None]
  - ARTHROPATHY [None]
  - ATTENTION DEFICIT/HYPERACTIVITY DISORDER [None]
  - BACK PAIN [None]
  - BIPOLAR DISORDER [None]
  - NEPHROLITHIASIS [None]
  - WRONG TECHNIQUE IN DRUG USAGE PROCESS [None]
